FAERS Safety Report 21516937 (Version 4)
Quarter: 2024Q2

REPORT INFORMATION
  Report Type: Report from Study
  Country: DE (occurrence: DE)
  Receive Date: 20221028
  Receipt Date: 20240604
  Transmission Date: 20240716
  Serious: Yes (Hospitalization, Other)
  Sender: FDA-Public Use
  Company Number: DE-ABBVIE-22K-062-4407261-00

PATIENT
  Age: 62 Year
  Sex: Male
  Weight: 99 kg

DRUGS (5)
  1. RINVOQ [Suspect]
     Active Substance: UPADACITINIB
     Indication: Rheumatoid arthritis
     Route: 048
     Dates: start: 20211021, end: 20220505
  2. RINVOQ [Suspect]
     Active Substance: UPADACITINIB
     Indication: Rheumatoid arthritis
     Route: 048
     Dates: start: 20220507, end: 20230626
  3. RINVOQ [Suspect]
     Active Substance: UPADACITINIB
     Indication: Rheumatoid arthritis
     Route: 048
     Dates: start: 20230701
  4. PREDNISOLONE [Concomitant]
     Active Substance: PREDNISOLONE
     Indication: Product used for unknown indication
     Route: 048
     Dates: start: 20210427
  5. CANDESARTAN [Concomitant]
     Active Substance: CANDESARTAN
     Indication: Hypertension
     Route: 048
     Dates: start: 20190627

REACTIONS (3)
  - Ligament rupture [Recovered/Resolved]
  - COVID-19 [Recovered/Resolved]
  - Osteoarthritis [Recovered/Resolved]

NARRATIVE: CASE EVENT DATE: 20220315
